FAERS Safety Report 4982021-3 (Version None)
Quarter: 2006Q2

REPORT INFORMATION
  Report Type: 
  Country: None (occurrence: None)
  Receive Date: 20060425
  Receipt Date: 20050419
  Transmission Date: 20061013
  Serious: Yes (Hospitalization)
  Sender: FDA-Public Use
  Company Number: US-MERCK-0504USA03813

PATIENT
  Age: 57 Year
  Sex: Female
  Weight: 136 kg

DRUGS (1)
  1. VIOXX [Suspect]
     Indication: ARTHRITIS
     Route: 048
     Dates: start: 20010612, end: 20040901

REACTIONS (9)
  - ASTHMA [None]
  - BRONCHITIS [None]
  - DYSPNOEA [None]
  - GLUCOSE TOLERANCE IMPAIRED [None]
  - HYPERTENSION [None]
  - HYPOTHYROIDISM [None]
  - OESOPHAGEAL DISORDER [None]
  - PERIPHERAL EMBOLISM [None]
  - PULMONARY EMBOLISM [None]
